FAERS Safety Report 8844674 (Version 3)
Quarter: 2012Q4

REPORT INFORMATION
  Report Type: 
  Country: MX (occurrence: MX)
  Receive Date: 20121017
  Receipt Date: 20121123
  Transmission Date: 20130627
  Serious: Yes (Other)
  Sender: FDA-Public Use
  Company Number: PHHY2012MX091768

PATIENT
  Sex: Male

DRUGS (1)
  1. EXFORGE HCT [Suspect]
     Indication: HYPERTENSION
     Dosage: 1 DF (320 mg valsartan, 10 mg amlodipine, 25 mg hydrochlorotiazide), per day
     Route: 048
     Dates: start: 20120826

REACTIONS (2)
  - Feeling abnormal [Unknown]
  - Drug ineffective [Unknown]
